FAERS Safety Report 13710721 (Version 1)
Quarter: 2017Q3

REPORT INFORMATION
  Report Type: Spontaneous
  Country: US (occurrence: US)
  Receive Date: 20170702
  Receipt Date: 20170702
  Transmission Date: 20171127
  Serious: Yes (Disabling)
  Sender: FDA-Public Use
  Company Number: None

PATIENT
  Age: 44 Year
  Sex: Female
  Weight: 74.7 kg

DRUGS (2)
  1. LEXAPRO [Concomitant]
     Active Substance: ESCITALOPRAM OXALATE
  2. CLONAZEPAM 1MG [Suspect]
     Active Substance: CLONAZEPAM
     Indication: RESTLESS LEGS SYNDROME
     Dosage: ?          OTHER STRENGTH:MG;QUANTITY:1 TABLET(S);?
     Route: 048
     Dates: start: 20130314, end: 20160120

REACTIONS (10)
  - Anxiety [None]
  - Insomnia [None]
  - Palpitations [None]
  - Anger [None]
  - Tremor [None]
  - Bladder pain [None]
  - Akathisia [None]
  - Depression [None]
  - Muscle spasms [None]
  - Amnesia [None]

NARRATIVE: CASE EVENT DATE: 20160120
